FAERS Safety Report 12917864 (Version 1)
Quarter: 2016Q4

REPORT INFORMATION
  Report Type: Spontaneous
  Country: JP (occurrence: JP)
  Receive Date: 20161107
  Receipt Date: 20161107
  Transmission Date: 20170207
  Serious: Yes (Hospitalization)
  Sender: FDA-Public Use
  Company Number: JP-SUNOVION-2016SUN002217

PATIENT
  Age: 49 Year
  Sex: Male

DRUGS (14)
  1. PSYCHOTROPIC AGENTS [Suspect]
     Active Substance: UNSPECIFIED INGREDIENT
     Dosage: DOSE UNKNOWN
     Route: 048
     Dates: start: 20160901, end: 20160901
  2. BAYASPIRIN [Concomitant]
     Active Substance: ASPIRIN
     Dosage: 1 DF, QD
     Route: 048
  3. LUNESTA [Suspect]
     Active Substance: ESZOPICLONE
     Dosage: 96 MG, QD
     Route: 048
     Dates: start: 20160901, end: 20160901
  4. LUNESTA [Suspect]
     Active Substance: ESZOPICLONE
     Dosage: 2 MG QD
     Route: 048
  5. AZILVA [Concomitant]
     Active Substance: AZILSARTAN KAMEDOXOMIL
     Dosage: 1 DF, QD
     Route: 048
  6. OLANZAPINE ACCORD [Concomitant]
     Dosage: 1 DF, QD
     Route: 048
  7. ZYLORIC [Concomitant]
     Active Substance: ALLOPURINOL
     Dosage: 1 DF, QD
     Route: 048
  8. SODIUM VALPROATE [Concomitant]
     Active Substance: VALPROATE SODIUM
     Dosage: 3 G, QD
     Route: 048
  9. VASOLAN [Suspect]
     Active Substance: VERAPAMIL HYDROCHLORIDE
     Dosage: 3 DF, QD
     Route: 048
  10. QUETIAPINE FUMARATE. [Concomitant]
     Active Substance: QUETIAPINE FUMARATE
     Dosage: 1 DF, QD
     Route: 048
  11. SUNRYTHM [Suspect]
     Active Substance: PILSICAINIDE HYDROCHLORIDE
     Dosage: 3 DF, QD
     Route: 048
     Dates: start: 20160901, end: 20160901
  12. VASOLAN [Suspect]
     Active Substance: VERAPAMIL HYDROCHLORIDE
     Dosage: 72 MG, QD
     Route: 048
     Dates: start: 20160901, end: 20160901
  13. WARFARIN [Suspect]
     Active Substance: WARFARIN
     Dosage: QD
     Route: 048
  14. TAKEPRON [Concomitant]
     Active Substance: LANSOPRAZOLE
     Dosage: 1 DF, QD
     Route: 048

REACTIONS (7)
  - Blood pressure decreased [Recovering/Resolving]
  - Depressed level of consciousness [Recovering/Resolving]
  - Suicide attempt [Recovering/Resolving]
  - Overdose [Unknown]
  - Bradycardia [Recovering/Resolving]
  - Bundle branch block left [Recovering/Resolving]
  - Electrocardiogram QRS complex prolonged [Recovering/Resolving]

NARRATIVE: CASE EVENT DATE: 20160901
